FAERS Safety Report 23520118 (Version 2)
Quarter: 2024Q1

REPORT INFORMATION
  Report Type: Other
  Country: IN (occurrence: None)
  Receive Date: 20240214
  Receipt Date: 20240223
  Transmission Date: 20240409
  Serious: Yes (Death)
  Sender: FDA-Public Use
  Company Number: IN-ROCHE-3384621

PATIENT
  Age: 53 Year
  Sex: Male

DRUGS (2)
  1. TECENTRIQ [Suspect]
     Active Substance: ATEZOLIZUMAB
     Indication: Hepatocellular carcinoma
     Route: 041
     Dates: start: 20230527
  2. AVASTIN [Suspect]
     Active Substance: BEVACIZUMAB
     Indication: Hepatocellular carcinoma
     Dosage: AVASTIN DOSE HAD BEEN REDUCED FROM 800 MG TO 600 MG.
     Route: 042
     Dates: start: 20230527

REACTIONS (5)
  - Ascites [Fatal]
  - Platelet count decreased [Unknown]
  - Pyrexia [Unknown]
  - Asthenia [Unknown]
  - Infection [Unknown]
